FAERS Safety Report 5812959-6 (Version None)
Quarter: 2008Q3

REPORT INFORMATION
  Report Type: 
  Country: None (occurrence: None)
  Receive Date: 20080717
  Receipt Date: 20070827
  Transmission Date: 20090109
  Serious: No
  Sender: FDA-Public Use
  Company Number: A0676255A

PATIENT

DRUGS (1)
  1. NICORETTE [Suspect]

REACTIONS (2)
  - GINGIVAL PAIN [None]
  - TOOTH DISORDER [None]
